FAERS Safety Report 5358823-0 (Version None)
Quarter: 2007Q2

REPORT INFORMATION
  Report Type: 
  Country: None (occurrence: None)
  Receive Date: 20070615
  Receipt Date: 20070604
  Transmission Date: 20071010
  Serious: Yes (Hospitalization)
  Sender: FDA-Public Use
  Company Number: GB-AMGEN-US210109

PATIENT
  Sex: Male
  Weight: 68.5 kg

DRUGS (8)
  1. ENBREL [Suspect]
     Indication: JUVENILE ARTHRITIS
     Route: 058
     Dates: start: 20060401, end: 20061108
  2. ENBREL [Suspect]
     Route: 058
     Dates: start: 20070105
  3. METHOTREXATE [Concomitant]
     Route: 048
     Dates: end: 20061121
  4. KETOPROFEN [Concomitant]
     Dosage: 25MG AM AND 75MG PM
     Route: 048
     Dates: end: 20061101
  5. SULFASALAZINE [Concomitant]
     Route: 048
     Dates: end: 20061101
  6. RANITIDINE [Concomitant]
     Route: 048
     Dates: end: 20061101
  7. FOLIC ACID [Concomitant]
     Route: 048
     Dates: end: 20061101
  8. CALCIUM WITH VITAMIN D [Concomitant]
     Route: 048
     Dates: start: 20061101

REACTIONS (4)
  - DEHYDRATION [None]
  - HEADACHE [None]
  - HISTIOCYTOSIS HAEMATOPHAGIC [None]
  - PNEUMONIA [None]
